FAERS Safety Report 7724957-6 (Version None)
Quarter: 2011Q3

REPORT INFORMATION
  Report Type: 
  Country: None (occurrence: None)
  Receive Date: 20110901
  Receipt Date: 20110822
  Transmission Date: 20111222
  Serious: Yes (Hospitalization)
  Sender: FDA-Public Use
  Company Number: GB-JNJFOC-20110809621

PATIENT
  Age: 77 Year
  Sex: Female

DRUGS (3)
  1. ACETAMINOPHEN [Suspect]
     Route: 048
  2. ACETAMINOPHEN [Suspect]
     Indication: PAIN
     Route: 048
     Dates: start: 20110219
  3. STREPSILS [Suspect]
     Indication: OROPHARYNGEAL PAIN
     Route: 048
     Dates: start: 20110219

REACTIONS (4)
  - PANIC REACTION [None]
  - HYPERSENSITIVITY [None]
  - SWELLING FACE [None]
  - LIP SWELLING [None]
